FAERS Safety Report 19370174 (Version 1)
Quarter: 2021Q2

REPORT INFORMATION
  Report Type: Spontaneous
  Country: US (occurrence: US)
  Receive Date: 20210604
  Receipt Date: 20210604
  Transmission Date: 20210717
  Serious: Yes (Hospitalization, Other)
  Sender: FDA-Public Use
  Company Number: US-SCIEGENPHARMA-2021SCILIT00454

PATIENT
  Age: 70 Year
  Sex: Male

DRUGS (8)
  1. ASPIRIN [ACETYLSALICYLIC ACID] [Concomitant]
     Active Substance: ASPIRIN
     Indication: PRODUCT USED FOR UNKNOWN INDICATION
     Route: 065
  2. IMMUNOGLOBULIN I.V [Interacting]
     Active Substance: HUMAN IMMUNOGLOBULIN G
     Indication: SUPPORTIVE CARE
     Dosage: 2 MG/KG IVIG X 1 DOSE
     Route: 042
  3. ATORVASTATIN CALCIUM. [Suspect]
     Active Substance: ATORVASTATIN CALCIUM
     Indication: PRODUCT USED FOR UNKNOWN INDICATION
     Route: 065
  4. METOPROLOL. [Concomitant]
     Active Substance: METOPROLOL
     Indication: PRODUCT USED FOR UNKNOWN INDICATION
     Route: 065
  5. RITUXIMAB. [Interacting]
     Active Substance: RITUXIMAB
     Indication: SUPPORTIVE CARE
     Route: 042
  6. SOLU?MEDROL [Interacting]
     Active Substance: METHYLPREDNISOLONE SODIUM SUCCINATE
     Indication: SUPPORTIVE CARE
     Route: 065
  7. GLIPIZIDE. [Concomitant]
     Active Substance: GLIPIZIDE
     Indication: PRODUCT USED FOR UNKNOWN INDICATION
     Route: 065
  8. NORMAL SALINE [Interacting]
     Active Substance: SODIUM CHLORIDE
     Indication: SUPPORTIVE CARE
     Route: 065

REACTIONS (5)
  - Acute kidney injury [Recovering/Resolving]
  - Rhabdomyolysis [Recovering/Resolving]
  - Transaminases increased [Recovering/Resolving]
  - Autoimmune myocarditis [Recovering/Resolving]
  - Necrotising myositis [Recovering/Resolving]
